FAERS Safety Report 11398900 (Version 2)
Quarter: 2015Q3

REPORT INFORMATION
  Report Type: Report from Study
  Country: US (occurrence: US)
  Receive Date: 20150820
  Receipt Date: 20150911
  Transmission Date: 20151125
  Serious: No
  Sender: FDA-Public Use
  Company Number: US-AMGEN-USASL2015079419

PATIENT
  Age: 71 Year
  Sex: Female

DRUGS (1)
  1. ENBREL [Suspect]
     Active Substance: ETANERCEPT
     Indication: RHEUMATOID ARTHRITIS
     Dosage: 50 MG, QWK
     Route: 065
     Dates: start: 20150713, end: 20150803

REACTIONS (10)
  - Productive cough [Unknown]
  - Infection [Unknown]
  - Pyrexia [Unknown]
  - Drug dose omission [Recovered/Resolved]
  - Dyspnoea [Unknown]
  - Sputum discoloured [Unknown]
  - Allergic sinusitis [Unknown]
  - Joint swelling [Unknown]
  - Head discomfort [Unknown]
  - Nodule [Unknown]

NARRATIVE: CASE EVENT DATE: 2015
